FAERS Safety Report 5566723-6 (Version None)
Quarter: 2007Q4

REPORT INFORMATION
  Report Type: 
  Country: None (occurrence: None)
  Receive Date: 20071218
  Receipt Date: 20071218
  Transmission Date: 20080405
  Serious: Yes (Other)
  Sender: FDA-Public Use
  Company Number: None

PATIENT
  Age: 66 Year
  Sex: Male
  Weight: 95.2554 kg

DRUGS (1)
  1. CIALIS [Suspect]
     Indication: SEXUAL DYSFUNCTION
     Dosage: 1 TABLET  3  PO
     Route: 048
     Dates: start: 20040102, end: 20040107

REACTIONS (5)
  - DIZZINESS [None]
  - MENTAL DISORDER [None]
  - MUSCLE SPASMS [None]
  - PAIN [None]
  - VISUAL DISTURBANCE [None]
